FAERS Safety Report 23822474 (Version 1)
Quarter: 2024Q2

REPORT INFORMATION
  Report Type: Spontaneous
  Country: JP (occurrence: JP)
  Receive Date: 20240506
  Receipt Date: 20240506
  Transmission Date: 20240716
  Serious: Yes (Other)
  Sender: FDA-Public Use
  Company Number: JP-ANIPHARMA-2024-JP-000101

PATIENT
  Sex: Female

DRUGS (1)
  1. ARIMIDEX [Suspect]
     Active Substance: ANASTROZOLE
     Indication: Breast cancer female
     Dosage: 1 MG QD / 1 MG QD
     Route: 048

REACTIONS (3)
  - Renal impairment [Recovered/Resolved with Sequelae]
  - Renal failure [Unknown]
  - Tumour lysis syndrome [Unknown]
